FAERS Safety Report 10101378 (Version 2)
Quarter: 2014Q2

REPORT INFORMATION
  Report Type: Spontaneous
  Country: US (occurrence: US)
  Receive Date: 20140424
  Receipt Date: 20140609
  Transmission Date: 20141212
  Serious: No
  Sender: FDA-Public Use
  Company Number: US-PFIZER INC-2014113517

PATIENT
  Age: 65 Year
  Sex: Female
  Weight: 62.6 kg

DRUGS (4)
  1. CHANTIX [Suspect]
     Indication: SMOKING CESSATION THERAPY
     Dosage: UNK
     Route: 048
     Dates: end: 2009
  2. ADVAIR [Concomitant]
     Indication: CHRONIC OBSTRUCTIVE PULMONARY DISEASE
     Dosage: UNK
  3. XANAX [Concomitant]
     Dosage: 0.5 MG, UNK
  4. CRESTOR [Concomitant]
     Dosage: UNK

REACTIONS (3)
  - Stress [Recovered/Resolved]
  - Nausea [Recovered/Resolved]
  - Emotional disorder [Recovered/Resolved]
